FAERS Safety Report 7538494-5 (Version None)
Quarter: 2011Q2

REPORT INFORMATION
  Report Type: 
  Country: None (occurrence: None)
  Receive Date: 20110609
  Receipt Date: 20110527
  Transmission Date: 20111010
  Serious: Yes (Death, Congenital Anomaly)
  Sender: FDA-Public Use
  Company Number: GB-MYLANLABS-2011S1010373

PATIENT
  Sex: Male
  Weight: 1.12 kg

DRUGS (3)
  1. ALBUTEROL [Suspect]
     Route: 064
  2. BECLOMETHASONE DIPROPIONATE [Suspect]
     Route: 064
  3. CANDESARTAN CILEXETIL [Suspect]
     Route: 064

REACTIONS (13)
  - ANURIA [None]
  - NEONATAL HYPOTENSION [None]
  - RENAL APLASIA [None]
  - SKULL MALFORMATION [None]
  - DRUG EXPOSURE DURING PREGNANCY [None]
  - FOETAL HEART RATE ABNORMAL [None]
  - CONGENITAL BLADDER ANOMALY [None]
  - CONGENITAL FOOT MALFORMATION [None]
  - JOINT CONTRACTURE [None]
  - HYPOSPADIAS [None]
  - SINGLE FUNCTIONAL KIDNEY [None]
  - FOETAL GROWTH RESTRICTION [None]
  - PULMONARY CONGESTION [None]
